FAERS Safety Report 8793449 (Version 1)
Quarter: 2012Q4

REPORT INFORMATION
  Report Type: 
  Country: US (occurrence: US)
  Receive Date: 20120918
  Receipt Date: 20120918
  Transmission Date: 20130627
  Serious: No
  Sender: FDA-Public Use
  Company Number: US-009507513-1208USA008185

PATIENT

DRUGS (6)
  1. PEGINTRON [Suspect]
     Indication: HEPATITIS C
     Dosage: 80 Microgram, UNK
     Route: 058
     Dates: start: 20120714
  2. REBETOL [Suspect]
     Dosage: 400 mg, bid(400mg in the morning and 400 mg in the evening
     Route: 048
     Dates: start: 20120714
  3. NEURONTIN [Concomitant]
     Dosage: 800 mg, tid
  4. AMBIEN [Concomitant]
     Dosage: 5 mg, UNK
  5. GLIMEPIRIDE [Concomitant]
     Dosage: 4 mg, UNK
  6. PERCOCET [Concomitant]
     Dosage: 10 mg, UNK

REACTIONS (1)
  - Depression [Not Recovered/Not Resolved]
